FAERS Safety Report 17849093 (Version 2)
Quarter: 2020Q3

REPORT INFORMATION
  Report Type: Spontaneous
  Country: US (occurrence: US)
  Receive Date: 20200602
  Receipt Date: 20200924
  Transmission Date: 20201103
  Serious: Yes (Hospitalization, Disabling, Other)
  Sender: FDA-Public Use
  Company Number: US-009507513-2005USA008871

PATIENT
  Age: 45 Year
  Sex: Female

DRUGS (3)
  1. CARBOPLATIN. [Concomitant]
     Active Substance: CARBOPLATIN
  2. DOCETAXEL. [Concomitant]
     Active Substance: DOCETAXEL
  3. KEYTRUDA [Suspect]
     Active Substance: PEMBROLIZUMAB
     Indication: INVASIVE DUCTAL BREAST CARCINOMA
     Dosage: UNKNOWN

REACTIONS (2)
  - Product use in unapproved indication [Unknown]
  - Peripheral vascular disorder [Recovered/Resolved]
